FAERS Safety Report 4322637-0 (Version None)
Quarter: 2004Q1

REPORT INFORMATION
  Report Type: 
  Country: None (occurrence: None)
  Receive Date: 20040324
  Receipt Date: 20040304
  Transmission Date: 20041129
  Serious: Yes (Death, Hospitalization)
  Sender: FDA-Public Use
  Company Number: JP-BRISTOL-MYERS SQUIBB COMPANY-12524633

PATIENT
  Age: 49 Year
  Sex: Female

DRUGS (4)
  1. TAXOL [Suspect]
     Indication: BREAST CANCER
     Route: 042
     Dates: start: 20020604, end: 20020604
  2. PAMIDRONATE DISODIUM [Concomitant]
     Dates: start: 20020624, end: 20020722
  3. ANASTROZOLE [Concomitant]
     Dates: start: 20020624, end: 20020813
  4. MEDROXYPROGESTERONE ACETATE [Concomitant]
     Dates: start: 20020604, end: 20020813

REACTIONS (5)
  - ASCITES [None]
  - HEPATIC ATROPHY [None]
  - HEPATIC FAILURE [None]
  - METASTASES TO LIVER [None]
  - PLEURAL EFFUSION [None]
